FAERS Safety Report 8440448-1 (Version None)
Quarter: 2012Q2

REPORT INFORMATION
  Report Type: 
  Country: None (occurrence: None)
  Receive Date: 20120615
  Receipt Date: 20120607
  Transmission Date: 20120825
  Serious: Yes (Hospitalization)
  Sender: FDA-Public Use
  Company Number: US-GLAXOSMITHKLINE-A0883908A

PATIENT
  Age: 59 Year
  Sex: Male
  Weight: 119.1 kg

DRUGS (5)
  1. LISINOPRIL [Concomitant]
  2. SIMVASTATIN [Concomitant]
  3. NIFEDIPINE [Concomitant]
  4. AVANDIA [Suspect]
     Indication: DIABETES MELLITUS
     Dosage: 2MG PER DAY
     Route: 048
     Dates: start: 20050510, end: 20070701
  5. HYDROCHLOROTHIAZIDE [Concomitant]

REACTIONS (3)
  - CARDIOMYOPATHY [None]
  - MYOCARDIAL INFARCTION [None]
  - CORONARY ARTERY DISEASE [None]
